FAERS Safety Report 23942868 (Version 1)
Quarter: 2024Q2

REPORT INFORMATION
  Report Type: Spontaneous
  Country: US (occurrence: None)
  Receive Date: 20240605
  Receipt Date: 20240605
  Transmission Date: 20240716
  Serious: Yes (Life-Threatening, Other)
  Sender: FDA-Public Use
  Company Number: None

PATIENT
  Age: 54 Year
  Sex: Female
  Weight: 70.31 kg

DRUGS (2)
  1. DOXYCYCLINE HYCLATE [Suspect]
     Active Substance: DOXYCYCLINE HYCLATE
     Indication: Bacterial infection
     Dosage: FREQUENCY : TWICE A DAY;?
     Route: 055
     Dates: start: 20240531, end: 20240604
  2. DOXYCYCLINE [Concomitant]
     Active Substance: DOXYCYCLINE\DOXYCYCLINE HYCLATE

REACTIONS (13)
  - Balance disorder [None]
  - Vomiting [None]
  - Dyspnoea [None]
  - Loss of consciousness [None]
  - Pain [None]
  - Migraine [None]
  - Oropharyngeal pain [None]
  - Tremor [None]
  - Acne [None]
  - Diarrhoea [None]
  - Abdominal pain upper [None]
  - Vision blurred [None]
  - Dermatitis [None]

NARRATIVE: CASE EVENT DATE: 20240604
